FAERS Safety Report 21252482 (Version 2)
Quarter: 2022Q4

REPORT INFORMATION
  Report Type: Spontaneous
  Country: US (occurrence: US)
  Receive Date: 20220825
  Receipt Date: 20221005
  Transmission Date: 20230113
  Serious: No
  Sender: FDA-Public Use
  Company Number: US-JNJFOC-20220848978

PATIENT
  Age: 85 Year
  Sex: Female

DRUGS (2)
  1. OPSUMIT [Suspect]
     Active Substance: MACITENTAN
     Indication: Product used for unknown indication
     Dosage: TAKE 1 TABLET BY MOUTH ONCE DAILY
     Route: 048
     Dates: start: 20220228
  2. CEFDINIR [Suspect]
     Active Substance: CEFDINIR
     Indication: Sinusitis
     Route: 065

REACTIONS (3)
  - Sinusitis [Unknown]
  - Rash [Unknown]
  - Hyperhidrosis [Unknown]
